FAERS Safety Report 21351694 (Version 1)
Quarter: 2022Q3

REPORT INFORMATION
  Report Type: Spontaneous
  Country: IL (occurrence: IL)
  Receive Date: 20220919
  Receipt Date: 20220919
  Transmission Date: 20221026
  Serious: Yes (Other)
  Sender: FDA-Public Use
  Company Number: IL-PFIZER INC-PV202200062456

PATIENT
  Age: 5 Year
  Sex: Female

DRUGS (1)
  1. SOMATROPIN [Suspect]
     Active Substance: SOMATROPIN
     Dosage: UNK, 1X/DAY
     Route: 058
     Dates: end: 20220902

REACTIONS (3)
  - Seizure [Unknown]
  - Disease recurrence [Unknown]
  - Headache [Unknown]
